FAERS Safety Report 8911501 (Version 2)
Quarter: 2014Q1

REPORT INFORMATION
  Report Type: Spontaneous
  Country: NO (occurrence: None)
  Receive Date: 20121113
  Receipt Date: 20140324
  Transmission Date: 20141002
  Serious: Yes (Life-Threatening, Hospitalization, Other)
  Sender: FDA-Public Use
  Company Number: AUR-APL-2012-04810

PATIENT
  Age: 8 Decade
  Sex: Male

DRUGS (4)
  1. GABAPENTIN [Suspect]
     Indication: CHEST PAIN
  2. METOPROLOL [Suspect]
     Indication: GENERAL PHYSICAL HEALTH DETERIORATION
  3. PYRIDOSTIGMINE (PYRIDOSTIGMINE) [Concomitant]
  4. PREDNISOLONE [Concomitant]

REACTIONS (10)
  - Myocardial infarction [None]
  - Myasthenia gravis [None]
  - General physical health deterioration [None]
  - Pneumonia [None]
  - Chronic obstructive pulmonary disease [None]
  - Thymoma [None]
  - Haemorrhage [None]
  - Pneumothorax [None]
  - Intermittent claudication [None]
  - Thymus enlargement [None]
